FAERS Safety Report 5181142-2 (Version None)
Quarter: 2006Q4

REPORT INFORMATION
  Report Type: 
  Country: None (occurrence: None)
  Receive Date: 20061218
  Receipt Date: 20061218
  Transmission Date: 20070319
  Serious: Yes (Other)
  Sender: FDA-Public Use
  Company Number: None

PATIENT
  Age: 40 Year
  Sex: Female
  Weight: 85.7298 kg

DRUGS (9)
  1. FENTANYL [Suspect]
     Indication: NECK PAIN
     Dosage: 2-  50 MCG PATCHES   CHANGE EVERY 3 DAYS   TRANSDERMAL
     Route: 062
     Dates: start: 20060701
  2. FENTANYL [Suspect]
     Indication: PAIN
     Dosage: 2-  50 MCG PATCHES   CHANGE EVERY 3 DAYS   TRANSDERMAL
     Route: 062
     Dates: start: 20060701
  3. FENTANYL [Suspect]
     Indication: RADICULOPATHY
     Dosage: 2-  50 MCG PATCHES   CHANGE EVERY 3 DAYS   TRANSDERMAL
     Route: 062
     Dates: start: 20060701
  4. VICODIN [Concomitant]
  5. DEMEROL [Concomitant]
  6. SULINDAC [Concomitant]
  7. SOMA [Concomitant]
  8. FLEXERIL [Concomitant]
  9. KADIAN [Concomitant]

REACTIONS (5)
  - CONFUSIONAL STATE [None]
  - DRUG EFFECT DECREASED [None]
  - OVERDOSE [None]
  - SOMNOLENCE [None]
  - THERAPEUTIC RESPONSE UNEXPECTED WITH DRUG SUBSTITUTION [None]
